FAERS Safety Report 4873958-4 (Version None)
Quarter: 2006Q1

REPORT INFORMATION
  Report Type: 
  Country: None (occurrence: None)
  Receive Date: 20060103
  Receipt Date: 20060103
  Transmission Date: 20060701
  Serious: Yes (Other)
  Sender: FDA-Public Use
  Company Number: None

PATIENT
  Age: 56 Year
  Sex: Male
  Weight: 81.6475 kg

DRUGS (1)
  1. TOPROL-XL [Suspect]
     Indication: ATRIAL FIBRILLATION
     Dosage: 1 TABLET  ONCE  A DAY PO
     Route: 048
     Dates: start: 20051227, end: 20051228

REACTIONS (5)
  - DIARRHOEA [None]
  - DISTURBANCE IN ATTENTION [None]
  - DRUG INEFFECTIVE [None]
  - PERIPHERAL COLDNESS [None]
  - VOMITING [None]
